FAERS Safety Report 9748849 (Version 1)
Quarter: 2013Q4

REPORT INFORMATION
  Report Type: Spontaneous
  Country: US (occurrence: US)
  Receive Date: 20131212
  Receipt Date: 20131212
  Transmission Date: 20140711
  Serious: Yes (Hospitalization, Other)
  Sender: FDA-Public Use
  Company Number: US-BAYER-2013-149357

PATIENT
  Sex: Female

DRUGS (1)
  1. MIRENA [Suspect]
     Indication: CONTRACEPTION
     Dosage: DAILY DOSE 20 ?G
     Route: 015
     Dates: start: 2009

REACTIONS (20)
  - Device dislocation [None]
  - Fatigue [None]
  - Abdominal pain [None]
  - Musculoskeletal discomfort [None]
  - Vision blurred [None]
  - Dyspareunia [None]
  - Headache [None]
  - Disturbance in sexual arousal [None]
  - Vaginal disorder [None]
  - Panic attack [None]
  - Haemorrhagic ovarian cyst [None]
  - Nausea [None]
  - Pyrexia [None]
  - Emotional disorder [None]
  - Dyspnoea [None]
  - Disorientation [None]
  - Decreased appetite [None]
  - Acne [None]
  - Breast mass [None]
  - Meningitis [None]
